FAERS Safety Report 4515596-9 (Version None)
Quarter: 2004Q3

REPORT INFORMATION
  Report Type: 
  Country: None (occurrence: None)
  Receive Date: 20040930
  Receipt Date: 20031028
  Transmission Date: 20050211
  Serious: Yes (Hospitalization)
  Sender: FDA-Public Use
  Company Number: US-JNJFOC-20030904560

PATIENT
  Age: 80 Year
  Sex: Female

DRUGS (1)
  1. DITROPAN XL [Suspect]
     Dosage: 1 IN 1 DAY, ORAL
     Route: 048

REACTIONS (3)
  - CONSTIPATION [None]
  - DIZZINESS [None]
  - PYREXIA [None]
